FAERS Safety Report 10047523 (Version 2)
Quarter: 2014Q2

REPORT INFORMATION
  Report Type: Spontaneous
  Country: FR (occurrence: FR)
  Receive Date: 20140331
  Receipt Date: 20140410
  Transmission Date: 20141212
  Serious: Yes (Death, Other)
  Sender: FDA-Public Use
  Company Number: FR-JNJFOC-20140309964

PATIENT
  Age: 29 Year
  Sex: Female

DRUGS (9)
  1. RISPERDAL [Suspect]
     Indication: SCHIZOPHRENIA, PARANOID TYPE
     Route: 048
     Dates: start: 20140121
  2. RISPERDAL [Suspect]
     Indication: SCHIZOPHRENIA, PARANOID TYPE
     Route: 048
     Dates: end: 20140211
  3. LYSANXIA [Suspect]
     Indication: ANXIETY
     Route: 048
     Dates: start: 20140206, end: 20140211
  4. TERCIAN [Suspect]
     Indication: PRODUCT USED FOR UNKNOWN INDICATION
     Route: 065
     Dates: start: 201401, end: 20140211
  5. ABILIFY [Suspect]
     Indication: SCHIZOPHRENIA
     Route: 048
     Dates: start: 20140209, end: 20140211
  6. VALIUM [Suspect]
     Indication: ANXIETY
     Route: 048
     Dates: start: 20140121, end: 20140211
  7. ABILIFY [Suspect]
     Indication: SCHIZOPHRENIA
     Route: 030
     Dates: start: 20140211
  8. MOVICOL [Concomitant]
     Route: 065
  9. PARKINANE [Concomitant]
     Indication: PRODUCT USED FOR UNKNOWN INDICATION
     Route: 048
     Dates: start: 20140205, end: 20140211

REACTIONS (4)
  - Sudden death [Fatal]
  - Aspiration [Fatal]
  - Dysphagia [Unknown]
  - Drug ineffective [Unknown]
